FAERS Safety Report 14000386 (Version 1)
Quarter: 2017Q3

REPORT INFORMATION
  Report Type: Report from Study
  Country: US (occurrence: US)
  Receive Date: 20170922
  Receipt Date: 20170922
  Transmission Date: 20171128
  Serious: Yes (Other)
  Sender: FDA-Public Use
  Company Number: US-ASTELLAS-2017US037232

PATIENT

DRUGS (5)
  1. ERLOTINIB [Suspect]
     Active Substance: ERLOTINIB
     Indication: SQUAMOUS CELL CARCINOMA OF HEAD AND NECK
     Dosage: 150 MG, ONCE DAILY X 2 DAYS
     Route: 048
  2. PACLITAXEL. [Suspect]
     Active Substance: PACLITAXEL
     Indication: SQUAMOUS CELL CARCINOMA OF HEAD AND NECK
     Route: 042
  3. CETUXIMAB. [Suspect]
     Active Substance: CETUXIMAB
     Indication: SQUAMOUS CELL CARCINOMA OF HEAD AND NECK
     Dosage: 400 MG/M2, OTHER (LOADING DOSE)
     Route: 042
  4. CARBOPLATIN. [Suspect]
     Active Substance: CARBOPLATIN
     Indication: SQUAMOUS CELL CARCINOMA OF HEAD AND NECK
     Dosage: UNK, ONCE WEEKLY (AUC 2)
     Route: 042
  5. CETUXIMAB. [Suspect]
     Active Substance: CETUXIMAB
     Route: 042

REACTIONS (6)
  - Anaemia [Unknown]
  - Hypomagnesaemia [Unknown]
  - Neutropenia [Unknown]
  - Diarrhoea [Unknown]
  - Rash [Unknown]
  - Neuropathy peripheral [Unknown]
